FAERS Safety Report 19233045 (Version 1)
Quarter: 2021Q2

REPORT INFORMATION
  Report Type: Spontaneous
  Country: GB (occurrence: GB)
  Receive Date: 20210507
  Receipt Date: 20210507
  Transmission Date: 20210717
  Serious: Yes (Hospitalization)
  Sender: FDA-Public Use
  Company Number: GB-LUPIN PHARMACEUTICALS INC.-2021-06294

PATIENT
  Sex: Male
  Weight: 2.15 kg

DRUGS (1)
  1. MORPHINE [Suspect]
     Active Substance: MORPHINE
     Indication: PROCEDURAL PAIN
     Dosage: 100 MICROGRAM/KILOGRAM
     Route: 048

REACTIONS (2)
  - Oxygen saturation decreased [Unknown]
  - Heart rate decreased [Unknown]
